FAERS Safety Report 7549155-0 (Version None)
Quarter: 2011Q2

REPORT INFORMATION
  Report Type: 
  Country: None (occurrence: None)
  Receive Date: 20110615
  Receipt Date: 20110531
  Transmission Date: 20111010
  Serious: Yes (Hospitalization, Disabling, Other)
  Sender: FDA-Public Use
  Company Number: PHHY2011FR38499

PATIENT
  Age: 69 Year
  Sex: Male
  Weight: 67 kg

DRUGS (6)
  1. LERCANIDIPINE [Concomitant]
     Dosage: 1 DF, QD
     Dates: start: 20040101
  2. RILMENIDINE [Concomitant]
     Dosage: 2 DF, QD
     Route: 048
     Dates: start: 20050101
  3. RASILEZ HCT [Suspect]
     Indication: HYPERTENSION
     Dosage: 1 DF, QD
     Dates: start: 20110325, end: 20110501
  4. ZOXAN LP [Concomitant]
     Indication: BENIGN PROSTATIC HYPERPLASIA
     Dosage: 1 DF, QD
     Dates: start: 20020101
  5. ALDACTONE [Concomitant]
     Dosage: 1 DF, QD
     Route: 048
     Dates: start: 20110120, end: 20110517
  6. QUINTATHERAPY [Concomitant]
     Indication: HYPERTENSION

REACTIONS (7)
  - DEHYDRATION [None]
  - FATIGUE [None]
  - HYPERKALAEMIA [None]
  - MYALGIA [None]
  - BLOOD CREATININE INCREASED [None]
  - DIARRHOEA [None]
  - RENAL FAILURE ACUTE [None]
